FAERS Safety Report 9450238 (Version 2)
Quarter: 2013Q3

REPORT INFORMATION
  Report Type: Spontaneous
  Country: ES (occurrence: ES)
  Receive Date: 20130809
  Receipt Date: 20130816
  Transmission Date: 20140515
  Serious: Yes (Other)
  Sender: FDA-Public Use
  Company Number: ES-SANOFI-AVENTIS-2013SA076625

PATIENT
  Age: 78 Year
  Sex: Female

DRUGS (4)
  1. LEFLUNOMIDE [Suspect]
     Indication: RHEUMATOID ARTHRITIS
     Route: 065
     Dates: start: 200908, end: 201105
  2. CORTICOSTEROIDS FOR SYSTEMIC USE [Concomitant]
  3. ALENDRONATE [Concomitant]
  4. ETORICOXIB [Concomitant]

REACTIONS (7)
  - Keratoacanthoma [Recovered/Resolved with Sequelae]
  - Nodule [Recovered/Resolved with Sequelae]
  - Papule [Recovered/Resolved with Sequelae]
  - Skin lesion [Recovered/Resolved with Sequelae]
  - Actinic keratosis [Recovered/Resolved with Sequelae]
  - Skin ulcer [Recovered/Resolved with Sequelae]
  - Scar [Unknown]
